FAERS Safety Report 9845199 (Version 2)
Quarter: 2014Q1

REPORT INFORMATION
  Report Type: Spontaneous
  Country: FR (occurrence: FR)
  Receive Date: 20140127
  Receipt Date: 20140326
  Transmission Date: 20141002
  Serious: Yes (Hospitalization)
  Sender: FDA-Public Use
  Company Number: FR-UCBSA-110288

PATIENT
  Age: 55 Year
  Sex: Male

DRUGS (6)
  1. CETIRIZINE [Suspect]
     Dates: start: 20131223
  2. ATARAX [Suspect]
     Dates: start: 20131223
  3. VIMPAT [Suspect]
     Indication: POSTOPERATIVE CARE
     Route: 048
     Dates: start: 20131108
  4. KEPPRA [Suspect]
     Route: 048
     Dates: start: 20130908, end: 2013
  5. KEPPRA [Suspect]
     Route: 048
     Dates: start: 2013, end: 20131227
  6. DI-HYDAN [Suspect]
     Route: 048
     Dates: start: 20131108, end: 20131223

REACTIONS (6)
  - Pruritus [Recovered/Resolved]
  - Exfoliative rash [Recovered/Resolved]
  - Rash erythematous [Recovered/Resolved]
  - Eosinophil count increased [Recovered/Resolved]
  - Face oedema [Recovered/Resolved]
  - Toxic skin eruption [Recovered/Resolved]
